FAERS Safety Report 13802197 (Version 4)
Quarter: 2017Q4

REPORT INFORMATION
  Report Type: Report from Study
  Country: US (occurrence: US)
  Receive Date: 20170727
  Receipt Date: 20171011
  Transmission Date: 20180320
  Serious: Yes (Death, Hospitalization)
  Sender: FDA-Public Use
  Company Number: US-ACTELION-A-NJ2017-157159

PATIENT
  Age: 84 Year
  Sex: Female

DRUGS (6)
  1. OPSUMIT [Suspect]
     Active Substance: MACITENTAN
     Indication: PULMONARY ARTERIAL HYPERTENSION
     Dosage: 10 MG, QD
     Route: 048
     Dates: start: 20160321, end: 20170907
  2. COUMADIN [Concomitant]
     Active Substance: WARFARIN SODIUM
     Dosage: 2 MG (1.5 TABLET) QD
  3. BIOTIN [Concomitant]
     Active Substance: BIOTIN
  4. ASA [Concomitant]
     Active Substance: ASPIRIN
     Dosage: 81 MG, UNK
  5. SILDENAFIL. [Concomitant]
     Active Substance: SILDENAFIL
     Dosage: 20 MG, UNK
  6. LASIX [Concomitant]
     Active Substance: FUROSEMIDE

REACTIONS (9)
  - Right ventricular failure [Fatal]
  - Heart valve replacement [Recovered/Resolved]
  - Cardiac tamponade [Fatal]
  - Condition aggravated [Fatal]
  - Pulmonary arterial hypertension [Fatal]
  - Hypertension [Fatal]
  - Pulseless electrical activity [Fatal]
  - Aortic valve stenosis [Recovered/Resolved]
  - Pulmonary fibrosis [Fatal]

NARRATIVE: CASE EVENT DATE: 20170626
